FAERS Safety Report 7518807 (Version 3)
Quarter: 2013Q4

REPORT INFORMATION
  Report Type: Spontaneous
  Country: GB (occurrence: GB)
  Receive Date: 20100802
  Receipt Date: 20131105
  Transmission Date: 20140711
  Serious: Yes (Death, Hospitalization, Other)
  Sender: FDA-Public Use
  Company Number: PHFR2010GB01474

PATIENT
  Sex: Male

DRUGS (3)
  1. CLOZARIL [Suspect]
     Dosage: 800 MG, UNK
     Route: 048
     Dates: start: 20040201
  2. AMISULPRIDE [Concomitant]
  3. VALPROATE SODIUM [Concomitant]
     Indication: CONVULSION
     Dosage: 1000 MG, UNK
     Route: 048

REACTIONS (13)
  - Malignant neoplasm progression [Fatal]
  - Respiratory disorder [Fatal]
  - Throat cancer [Fatal]
  - Lung disorder [Fatal]
  - Shock [Unknown]
  - Hypotension [Unknown]
  - Hyperhidrosis [Unknown]
  - Lip and/or oral cavity cancer [Unknown]
  - Lip ulceration [Unknown]
  - Choking [Unknown]
  - Psychotic disorder [Unknown]
  - Feeling abnormal [Unknown]
  - Constipation [Unknown]
